FAERS Safety Report 5405277-1 (Version None)
Quarter: 2007Q3

REPORT INFORMATION
  Report Type: 
  Country: None (occurrence: None)
  Receive Date: 20070803
  Receipt Date: 20070730
  Transmission Date: 20080115
  Serious: Yes (Hospitalization)
  Sender: FDA-Public Use
  Company Number: A0666910A

PATIENT
  Age: 76 Year
  Sex: Male

DRUGS (9)
  1. COREG [Suspect]
     Indication: CARDIAC DISORDER
     Dosage: 12.5MG TWICE PER DAY
     Route: 048
     Dates: start: 20050613, end: 20070711
  2. COREG CR [Suspect]
     Indication: CARDIAC DISORDER
     Dosage: 20MG PER DAY
     Route: 048
     Dates: start: 20070712, end: 20070717
  3. DIGOXIN [Suspect]
  4. LABETALOL HCL [Concomitant]
  5. AVAPRO [Concomitant]
  6. COREG [Concomitant]
  7. ASPIRIN [Concomitant]
  8. FUROSEMIDE [Concomitant]
  9. POTASSIUM CHLORIDE [Concomitant]

REACTIONS (3)
  - CARDIAC FAILURE [None]
  - DRUG INEFFECTIVE [None]
  - THERAPEUTIC AGENT TOXICITY [None]
